FAERS Safety Report 6030267-8 (Version None)
Quarter: 2009Q1

REPORT INFORMATION
  Report Type: 
  Country: None (occurrence: None)
  Receive Date: 20090107
  Receipt Date: 20081226
  Transmission Date: 20090719
  Serious: Yes (Other)
  Sender: FDA-Public Use
  Company Number: JP-SANOFI-SYNTHELABO-A01200816689

PATIENT
  Age: 56 Year
  Sex: Male

DRUGS (3)
  1. LEUCOVORIN CALCIUM [Concomitant]
     Indication: LARGE INTESTINE CARCINOMA
     Dosage: UNK
     Route: 041
     Dates: start: 20081030, end: 20081206
  2. FLUOROURACIL [Suspect]
     Indication: LARGE INTESTINE CARCINOMA
     Dosage: 700 MG/BODY IN BOLUS THEN 4500 MG/BODY/2 DAYS
     Route: 041
     Dates: start: 20081206, end: 20081207
  3. ELPLAT [Suspect]
     Indication: LARGE INTESTINE CARCINOMA
     Route: 041
     Dates: start: 20081206, end: 20081206

REACTIONS (1)
  - LEUKOENCEPHALOPATHY [None]
